FAERS Safety Report 4928092-1 (Version None)
Quarter: 2006Q1

REPORT INFORMATION
  Report Type: 
  Country: None (occurrence: None)
  Receive Date: 20060127
  Receipt Date: 20051208
  Transmission Date: 20060701
  Serious: Yes (Other)
  Sender: FDA-Public Use
  Company Number: 2005166988

PATIENT
  Age: 70 Year
  Sex: Female
  Weight: 73.9363 kg

DRUGS (9)
  1. LYRICA [Suspect]
     Indication: ARTHRALGIA
     Dosage: 150 MG (75 MG, 2 IN 1 D), ORAL
     Route: 048
     Dates: start: 20051101
  2. LYRICA [Suspect]
     Indication: PAIN IN EXTREMITY
     Dosage: 150 MG (75 MG, 2 IN 1 D), ORAL
     Route: 048
     Dates: start: 20051101
  3. DYAZIDE [Concomitant]
  4. ARTHROTEC [Concomitant]
  5. CLONAZEPAM [Concomitant]
  6. TRICOR [Concomitant]
  7. TOPROL-XL [Concomitant]
  8. EVISTA [Concomitant]
  9. PAROXETINE (PAROXETINE) [Concomitant]

REACTIONS (1)
  - DRUG INEFFECTIVE [None]
